FAERS Safety Report 22298659 (Version 1)
Quarter: 2023Q2

REPORT INFORMATION
  Report Type: Spontaneous
  Country: US (occurrence: None)
  Receive Date: 20230508
  Receipt Date: 20230508
  Transmission Date: 20230721
  Serious: No
  Sender: FDA-Public Use
  Company Number: None

PATIENT
  Sex: Male
  Weight: 95.25 kg

DRUGS (23)
  1. PREDNISONE [Suspect]
     Active Substance: PREDNISONE
     Indication: Prostate cancer
     Dosage: FREQUENCY : TWICE A DAY;?
     Route: 048
  2. ABIRATERONE ACETATE [Suspect]
     Active Substance: ABIRATERONE ACETATE
     Indication: Prostate cancer
     Dosage: FREQUENCY : DAILY;?
     Route: 048
     Dates: start: 20220518
  3. AMLODIPINE [Concomitant]
  4. Artificial Tears [Concomitant]
  5. Aspirin [Concomitant]
  6. ATORVASTATIN [Concomitant]
  7. CALCIUM [Concomitant]
     Active Substance: CALCIUM
  8. DONEPEZIL [Concomitant]
  9. FLUTICASONE [Concomitant]
  10. FOLIC ACID [Concomitant]
     Active Substance: FOLIC ACID
  11. GLUCOSAMINE [Concomitant]
     Active Substance: GLUCOSAMINE
  12. KETOROLAC [Concomitant]
     Active Substance: KETOROLAC TROMETHAMINE
  13. LOSARTAN [Concomitant]
     Active Substance: LOSARTAN
  14. LUCENTIS [Concomitant]
     Active Substance: RANIBIZUMAB
  15. LUPRON DEPOT [Concomitant]
     Active Substance: LEUPROLIDE ACETATE
  16. Lutein [Concomitant]
  17. NAMENDA [Concomitant]
     Active Substance: MEMANTINE HYDROCHLORIDE
  18. Pepcid [Concomitant]
  19. TAMSULOSIN [Concomitant]
  20. VITAMIN B12 [Concomitant]
     Active Substance: CYANOCOBALAMIN
  21. VITAMIN C [Concomitant]
     Active Substance: ASCORBIC ACID
  22. VITAMIN D3 [Concomitant]
     Active Substance: CHOLECALCIFEROL
  23. VITAMIN E [Concomitant]
     Active Substance: .ALPHA.-TOCOPHEROL

REACTIONS (1)
  - Hospice care [None]
